FAERS Safety Report 12608973 (Version 2)
Quarter: 2016Q3

REPORT INFORMATION
  Report Type: Spontaneous
  Country: CO (occurrence: CO)
  Receive Date: 20160731
  Receipt Date: 20160919
  Transmission Date: 20161109
  Serious: Yes (Death, Other)
  Sender: FDA-Public Use
  Company Number: CO-AMGEN-COLSP2016096685

PATIENT
  Sex: Female

DRUGS (1)
  1. BLINCYTO [Suspect]
     Active Substance: BLINATUMOMAB
     Indication: ACUTE LYMPHOCYTIC LEUKAEMIA
     Dosage: 28 MUG, QD, CONTINEOUS INFUSION
     Route: 065
     Dates: start: 20160721

REACTIONS (6)
  - Pain in extremity [Unknown]
  - Death [Fatal]
  - Musculoskeletal chest pain [Unknown]
  - Cytokine release syndrome [Unknown]
  - Arthralgia [Unknown]
  - Blast cell count increased [Unknown]

NARRATIVE: CASE EVENT DATE: 20160721
